FAERS Safety Report 9856005 (Version 3)
Quarter: 2014Q1

REPORT INFORMATION
  Report Type: Spontaneous
  Country: US (occurrence: US)
  Receive Date: 20140130
  Receipt Date: 20140213
  Transmission Date: 20141002
  Serious: No
  Sender: FDA-Public Use
  Company Number: US-PFIZER INC-2014027339

PATIENT
  Age: 8 Year
  Sex: Male

DRUGS (6)
  1. GENOTROPIN MQ [Suspect]
     Indication: PRADER-WILLI SYNDROME
     Dosage: 1 MG, 1X/DAY
     Route: 058
  2. PROVIGIL [Concomitant]
     Dosage: 100 MG, UNK
  3. CELEXA [Concomitant]
     Dosage: 20 MG, UNK
  4. VITAMIN D [Concomitant]
     Dosage: 1000 IU, UNK
  5. PREVACID [Concomitant]
     Dosage: 15 MG, UNK
  6. DESMOPRESSIN [Concomitant]
     Dosage: 0.6 MG, UNK

REACTIONS (2)
  - Headache [Recovered/Resolved]
  - Lethargy [Unknown]
